FAERS Safety Report 4416223-1 (Version None)
Quarter: 2004Q3

REPORT INFORMATION
  Report Type: 
  Country: None (occurrence: None)
  Receive Date: 20040803
  Receipt Date: 20040719
  Transmission Date: 20050211
  Serious: Yes (Other)
  Sender: FDA-Public Use
  Company Number: US-JNJFOC-20040401386

PATIENT
  Age: 45 Year
  Sex: Female

DRUGS (4)
  1. DURAGESIC [Suspect]
     Indication: PAIN
     Dosage: 75 UG/HR, 1 IN, TRANSDERMAL
     Route: 062
     Dates: start: 20020101
  2. DURAGESIC [Suspect]
     Indication: PAIN
     Dosage: 75 UG/HR, 1 IN, TRANSDERMAL
     Route: 062
     Dates: start: 20030926
  3. MODAFINIL [Concomitant]
  4. VALDECOXIB [Concomitant]

REACTIONS (7)
  - DIZZINESS [None]
  - HYPERHIDROSIS [None]
  - INFLUENZA LIKE ILLNESS [None]
  - LOSS OF CONSCIOUSNESS [None]
  - MEDICATION ERROR [None]
  - PHARMACEUTICAL PRODUCT COMPLAINT [None]
  - TREMOR [None]
